FAERS Safety Report 4412949-4 (Version None)
Quarter: 2004Q3

REPORT INFORMATION
  Report Type: 
  Country: None (occurrence: None)
  Receive Date: 20040802
  Receipt Date: 20030908
  Transmission Date: 20050211
  Serious: No
  Sender: FDA-Public Use
  Company Number: US-GLAXOSMITHKLINE-A0425054A

PATIENT
  Age: 3 Month
  Sex: Female

DRUGS (3)
  1. ZANTAC [Suspect]
     Dosage: 1.5ML TWICE PER DAY
     Route: 048
     Dates: start: 20030609, end: 20030809
  2. NYSTATIN [Concomitant]
  3. SULFAMETHOXAZOLE [Concomitant]

REACTIONS (3)
  - ANOREXIA [None]
  - OVERDOSE [None]
  - VOMITING PROJECTILE [None]
